FAERS Safety Report 21232202 (Version 1)
Quarter: 2022Q3

REPORT INFORMATION
  Report Type: Report from Study
  Country: CN (occurrence: CN)
  Receive Date: 20220819
  Receipt Date: 20220819
  Transmission Date: 20221027
  Serious: Yes (Hospitalization)
  Sender: FDA-Public Use
  Company Number: CN-ADC THERAPEUTICS SA-ADC-2022-000131

PATIENT
  Age: 75 Year
  Sex: Male

DRUGS (19)
  1. LONCASTUXIMAB TESIRINE [Suspect]
     Active Substance: LONCASTUXIMAB TESIRINE
     Indication: Diffuse large B-cell lymphoma
     Dosage: UNK, Q3WK
     Route: 042
     Dates: start: 20220517
  2. LONCASTUXIMAB TESIRINE [Suspect]
     Active Substance: LONCASTUXIMAB TESIRINE
     Dosage: 75 MICROGRAM/KILOGRAM, Q3WK
     Route: 042
     Dates: start: 20220701, end: 20220701
  3. CANDESARTAN CILEXETIL [Concomitant]
     Active Substance: CANDESARTAN CILEXETIL
     Indication: Hypertension
     Dosage: 4 MG, QD
     Route: 048
     Dates: start: 20220512
  4. URSODIOL [Concomitant]
     Active Substance: URSODIOL
     Indication: Gamma-glutamyltransferase increased
     Dosage: 250 MILLIGRAM, TID
     Route: 048
     Dates: start: 20220621, end: 20220721
  5. URSODIOL [Concomitant]
     Active Substance: URSODIOL
     Indication: Blood alkaline phosphatase increased
  6. URSODIOL [Concomitant]
     Active Substance: URSODIOL
     Indication: Total bile acids increased
  7. URSODIOL [Concomitant]
     Active Substance: URSODIOL
     Indication: Blood bilirubin increased
  8. OLOPATADINE HYDROCHLORIDE [Concomitant]
     Active Substance: OLOPATADINE HYDROCHLORIDE
     Indication: Rash
     Dosage: 5 MILLIGRAM, TID
     Route: 048
     Dates: start: 20220618
  9. TOBRAMYCIN AND DEXAMETHASONE [Concomitant]
     Active Substance: DEXAMETHASONE\TOBRAMYCIN
     Indication: Rash
     Dosage: UNK, PRN
     Route: 061
     Dates: start: 20220618
  10. SPIRONOLACTONE [Concomitant]
     Active Substance: SPIRONOLACTONE
     Indication: Localised oedema
     Dosage: 20 MILLIGRAM, TID
     Route: 048
     Dates: start: 20220629, end: 20220718
  11. SPIRONOLACTONE [Concomitant]
     Active Substance: SPIRONOLACTONE
     Indication: Pleural effusion
  12. FUROSEMIDE [Concomitant]
     Active Substance: FUROSEMIDE
     Indication: Localised oedema
     Dosage: 20 MILLIGRAM, QD
     Route: 048
     Dates: start: 20220629, end: 20220718
  13. FUROSEMIDE [Concomitant]
     Active Substance: FUROSEMIDE
     Indication: Pleural effusion
  14. POTASSIUM CHLORIDE [Concomitant]
     Active Substance: POTASSIUM CHLORIDE
     Indication: Prophylaxis
     Dosage: 1 GRAM, TID
     Route: 048
     Dates: start: 20220629
  15. PHOSPHOLIPID [Concomitant]
     Active Substance: PHOSPHOLIPID
     Indication: Blood alkaline phosphatase increased
     Dosage: 456 MILLIGRAM, TID
     Route: 048
     Dates: start: 20220629, end: 20220721
  16. PHOSPHOLIPID [Concomitant]
     Active Substance: PHOSPHOLIPID
     Indication: Gamma-glutamyltransferase increased
  17. PHOSPHOLIPID [Concomitant]
     Active Substance: PHOSPHOLIPID
     Indication: Aspartate aminotransferase increased
  18. DI YU SHENG BAI [Concomitant]
     Indication: White blood cell count decreased
     Dosage: 4 UNIT, TID
     Route: 048
     Dates: start: 20220621, end: 20220718
  19. DI YU SHENG BAI [Concomitant]
     Indication: Neutrophil count decreased

REACTIONS (1)
  - Decreased appetite [Recovering/Resolving]

NARRATIVE: CASE EVENT DATE: 20220718
